FAERS Safety Report 10456089 (Version 2)
Quarter: 2014Q4

REPORT INFORMATION
  Report Type: Report from Study
  Country: BR (occurrence: BR)
  Receive Date: 20140916
  Receipt Date: 20141112
  Transmission Date: 20150528
  Serious: Yes (Other)
  Sender: FDA-Public Use
  Company Number: BR-SA-2014SA122762

PATIENT
  Sex: Male

DRUGS (1)
  1. CEREZYME [Suspect]
     Active Substance: IMIGLUCERASE
     Indication: GAUCHER^S DISEASE
     Route: 041
     Dates: start: 20110101, end: 20141015

REACTIONS (4)
  - Hip arthroplasty [Unknown]
  - Pain in extremity [Unknown]
  - Nervous system disorder [Unknown]
  - Arthralgia [Unknown]
